FAERS Safety Report 5501414-9 (Version None)
Quarter: 2007Q4

REPORT INFORMATION
  Report Type: 
  Country: None (occurrence: None)
  Receive Date: 20071026
  Receipt Date: 20071026
  Transmission Date: 20080405
  Serious: Yes (Hospitalization)
  Sender: FDA-Public Use
  Company Number: None

PATIENT
  Sex: Male
  Weight: 97.7 kg

DRUGS (1)
  1. CISPLATIN [Suspect]
     Dosage: 180 MG
     Dates: end: 20071008

REACTIONS (5)
  - CONSTIPATION [None]
  - FATIGUE [None]
  - NAUSEA [None]
  - PYREXIA [None]
  - VOMITING [None]
